FAERS Safety Report 13584534 (Version 1)
Quarter: 2017Q2

REPORT INFORMATION
  Report Type: Spontaneous
  Country: JP (occurrence: JP)
  Receive Date: 20170526
  Receipt Date: 20170526
  Transmission Date: 20170830
  Serious: Yes (Hospitalization, Other)
  Sender: FDA-Public Use
  Company Number: PHJP2017JP016930

PATIENT

DRUGS (1)
  1. GLIVEC [Suspect]
     Active Substance: IMATINIB MESYLATE
     Indication: CHRONIC MYELOID LEUKAEMIA
     Dosage: 200 MG, QD
     Route: 048
     Dates: start: 201704

REACTIONS (3)
  - Interstitial lung disease [Unknown]
  - Haemorrhage subcutaneous [Recovered/Resolved]
  - Aortic aneurysm [Not Recovered/Not Resolved]

NARRATIVE: CASE EVENT DATE: 201705
